FAERS Safety Report 20594093 (Version 2)
Quarter: 2025Q2

REPORT INFORMATION
  Report Type: Spontaneous
  Country: BR (occurrence: BR)
  Receive Date: 20220315
  Receipt Date: 20250609
  Transmission Date: 20250716
  Serious: Yes (Hospitalization, Other)
  Sender: AUROBINDO
  Company Number: BR-MLMSERVICE-20220224-3396605-1

PATIENT
  Age: 53 Year
  Sex: Female

DRUGS (9)
  1. MEROPENEM [Suspect]
     Active Substance: MEROPENEM
     Indication: Pneumonia bacterial
     Route: 065
  2. MEROPENEM [Suspect]
     Active Substance: MEROPENEM
     Indication: Pseudomonas infection
  3. MEROPENEM [Suspect]
     Active Substance: MEROPENEM
     Indication: COVID-19
  4. VANCOMYCIN [Concomitant]
     Active Substance: VANCOMYCIN
     Indication: Pseudomonas infection
     Route: 065
  5. VANCOMYCIN [Concomitant]
     Active Substance: VANCOMYCIN
     Indication: Pneumonia bacterial
  6. VANCOMYCIN [Concomitant]
     Active Substance: VANCOMYCIN
     Indication: COVID-19
  7. POLYMYXIN B [Concomitant]
     Active Substance: POLYMYXIN B
     Indication: Pseudomonas infection
     Route: 065
  8. POLYMYXIN B [Concomitant]
     Active Substance: POLYMYXIN B
     Indication: Pneumonia bacterial
  9. POLYMYXIN B [Concomitant]
     Active Substance: POLYMYXIN B
     Indication: COVID-19

REACTIONS (3)
  - Type IV hypersensitivity reaction [Recovering/Resolving]
  - Dermatitis bullous [Recovering/Resolving]
  - Symmetrical drug-related intertriginous and flexural exanthema [Recovering/Resolving]
